FAERS Safety Report 11918122 (Version 1)
Quarter: 2016Q1

REPORT INFORMATION
  Report Type: Spontaneous
  Country: US (occurrence: US)
  Receive Date: 20160114
  Receipt Date: 20160114
  Transmission Date: 20160526
  Serious: No
  Sender: FDA-Public Use
  Company Number: US-009507513-1601USA001220

PATIENT
  Sex: Female

DRUGS (1)
  1. NEXPLANON [Suspect]
     Active Substance: ETONOGESTREL
     Indication: CONTRACEPTION
     Dosage: 68 MG, IMPLANT 3 YEARS
     Route: 059
     Dates: start: 20150615

REACTIONS (2)
  - Pain in extremity [Not Recovered/Not Resolved]
  - Device breakage [Not Recovered/Not Resolved]
